FAERS Safety Report 7270052-2 (Version None)
Quarter: 2011Q1

REPORT INFORMATION
  Report Type: 
  Country: None (occurrence: None)
  Receive Date: 20110124
  Receipt Date: 20110124
  Transmission Date: 20110831
  Serious: No
  Sender: FDA-Public Use
  Company Number: None

PATIENT

DRUGS (1)
  1. CHLORHEXIDINE GLUCONATE [Suspect]
     Dosage: 4 FL. OZ TOP
     Route: 061

REACTIONS (3)
  - DRUG LABEL CONFUSION [None]
  - DRUG DISPENSING ERROR [None]
  - MEDICATION ERROR [None]
